FAERS Safety Report 9269140 (Version 1)
Quarter: 2013Q2

REPORT INFORMATION
  Report Type: Spontaneous
  Country: GB (occurrence: GB)
  Receive Date: 20130503
  Receipt Date: 20130503
  Transmission Date: 20140414
  Serious: Yes (Hospitalization, Other)
  Sender: FDA-Public Use
  Company Number: GB-009507513-1305GBR000680

PATIENT
  Age: 40 Year
  Sex: Female
  Weight: 60 kg

DRUGS (3)
  1. MAXALT [Suspect]
     Indication: MIGRAINE
     Route: 048
  2. EDRONAX [Suspect]
     Indication: DEPRESSION
     Route: 048
  3. EDRONAX [Suspect]
     Indication: NEURALGIA

REACTIONS (10)
  - Anxiety [Recovered/Resolved]
  - Feeling of despair [Recovered/Resolved]
  - Trismus [Recovered/Resolved]
  - Mania [Recovered/Resolved]
  - Speech disorder [Recovered/Resolved]
  - Suicidal ideation [Recovered/Resolved]
  - Aphagia [Recovered/Resolved]
  - Hallucination, visual [Recovered/Resolved]
  - Tachycardia [Recovered/Resolved]
  - Palpitations [Recovered/Resolved]
